FAERS Safety Report 15566399 (Version 1)
Quarter: 2018Q4

REPORT INFORMATION
  Report Type: Spontaneous
  Country: US (occurrence: US)
  Receive Date: 20181030
  Receipt Date: 20181030
  Transmission Date: 20190205
  Serious: No
  Sender: FDA-Public Use
  Company Number: None

PATIENT
  Age: 32 Year
  Sex: Female
  Weight: 49.5 kg

DRUGS (1)
  1. ERYTHROMYCIN OPTHALMIC OINTMENT USP [Suspect]
     Active Substance: ERYTHROMYCIN
     Indication: CORNEAL ABRASION
     Dosage: ?          QUANTITY:3.5 GRAMS;?
     Route: 047
     Dates: start: 20181029, end: 20181029

REACTIONS (6)
  - Eye pain [None]
  - Visual impairment [None]
  - Ocular hyperaemia [None]
  - Blepharitis [None]
  - Lacrimation increased [None]
  - Swelling of eyelid [None]

NARRATIVE: CASE EVENT DATE: 20181029
